FAERS Safety Report 13177996 (Version 1)
Quarter: 2017Q1

REPORT INFORMATION
  Report Type: Spontaneous
  Country: GR (occurrence: GR)
  Receive Date: 20170202
  Receipt Date: 20170202
  Transmission Date: 20170428
  Serious: Yes (Death, Hospitalization, Other)
  Sender: FDA-Public Use
  Company Number: GR-ROCHE-1883551

PATIENT
  Age: 66 Year
  Sex: Male

DRUGS (5)
  1. DOXORUBICIN [Concomitant]
     Active Substance: DOXORUBICIN
  2. RITUXIMAB [Suspect]
     Active Substance: RITUXIMAB
     Indication: AUTOIMMUNE HAEMOLYTIC ANAEMIA
     Route: 042
  3. METHYLPREDNISOLONE. [Suspect]
     Active Substance: METHYLPREDNISOLONE
     Indication: AUTOIMMUNE HAEMOLYTIC ANAEMIA
     Dosage: 80 MG/DAY TAPERED TO 16 MG/DAY WITHIN ONE MONTH PERIOD, AND CONTINUED THEREAFTER AS MAINTENANCE DOSE
     Route: 065
  4. VINBLASTINE [Concomitant]
     Active Substance: VINBLASTINE
  5. BLEOMYCIN [Concomitant]
     Active Substance: BLEOMYCIN SULFATE

REACTIONS (3)
  - Post transplant lymphoproliferative disorder [Unknown]
  - Hepatitis B [Unknown]
  - Histiocytosis haematophagic [Fatal]
